FAERS Safety Report 7535195-4 (Version None)
Quarter: 2011Q2

REPORT INFORMATION
  Report Type: 
  Country: None (occurrence: None)
  Receive Date: 20110609
  Receipt Date: 20090409
  Transmission Date: 20111010
  Serious: Yes (Death)
  Sender: FDA-Public Use
  Company Number: PHHY2009IN13381

PATIENT
  Sex: Male

DRUGS (1)
  1. GLEEVEC [Suspect]
     Dosage: 400 MG, UNK

REACTIONS (3)
  - CARDIAC ARREST [None]
  - DISEASE PROGRESSION [None]
  - BLAST CRISIS IN MYELOGENOUS LEUKAEMIA [None]
